FAERS Safety Report 17638931 (Version 1)
Quarter: 2020Q2

REPORT INFORMATION
  Report Type: Spontaneous
  Country: US (occurrence: US)
  Receive Date: 20200407
  Receipt Date: 20200407
  Transmission Date: 20200713
  Serious: Yes (Other)
  Sender: FDA-Public Use
  Company Number: US-PFIZER INC-2020142704

PATIENT
  Age: 70 Year
  Sex: Female
  Weight: 62.59 kg

DRUGS (2)
  1. VITAMIN D3 [Concomitant]
     Active Substance: CHOLECALCIFEROL
     Dosage: 25 UG, UNK, (25 MCG)
  2. IBRANCE [Suspect]
     Active Substance: PALBOCICLIB
     Indication: BREAST CANCER
     Dosage: 125 MG, CYCLIC (1 DAILY FOR 21 DAYS)
     Route: 048
     Dates: start: 20200310

REACTIONS (13)
  - Asthenia [Unknown]
  - Mental disorder [Unknown]
  - Gait inability [Unknown]
  - Pain [Unknown]
  - Malaise [Unknown]
  - Weight decreased [Unknown]
  - Sexual dysfunction [Unknown]
  - Ageusia [Unknown]
  - Dizziness [Unknown]
  - Nausea [Unknown]
  - Blindness [Unknown]
  - Cognitive disorder [Unknown]
  - Loss of consciousness [Unknown]
